FAERS Safety Report 8828743 (Version 1)
Quarter: 2012Q4

REPORT INFORMATION
  Report Type: 
  Country: US (occurrence: US)
  Receive Date: 20121008
  Receipt Date: 20121008
  Transmission Date: 20130627
  Serious: No
  Sender: FDA-Public Use
  Company Number: US-TEVA-361631USA

PATIENT
  Sex: Female

DRUGS (4)
  1. TREANDA [Suspect]
     Indication: LYMPHOMA
     Route: 042
  2. RITUXAN [Concomitant]
  3. NEULASTA [Concomitant]
  4. ALOXI [Concomitant]

REACTIONS (1)
  - Headache [Not Recovered/Not Resolved]
